FAERS Safety Report 9809366 (Version 3)
Quarter: 2014Q1

REPORT INFORMATION
  Report Type: Spontaneous
  Country: AU (occurrence: AU)
  Receive Date: 20140110
  Receipt Date: 20140227
  Transmission Date: 20141002
  Serious: Yes (Other)
  Sender: FDA-Public Use
  Company Number: PHHY2014AU002547

PATIENT
  Age: 40 Year
  Sex: Female
  Weight: 91 kg

DRUGS (6)
  1. GILENYA [Suspect]
     Indication: MULTIPLE SCLEROSIS
     Route: 048
  2. METHOTREXATE [Concomitant]
     Dosage: 17.5 MG, QW
     Route: 048
  3. PLAQUENIL [Concomitant]
     Dosage: 400 MG, DAILY
     Route: 048
  4. FOLATE [Concomitant]
     Dosage: 10 MG, QW
     Route: 048
  5. DEPTRAN [Concomitant]
     Dosage: 150 MG, DAILY
     Route: 048
  6. LYRICA [Concomitant]
     Dosage: 225 MG, BID
     Route: 048

REACTIONS (5)
  - Cerebrovascular accident [Recovered/Resolved]
  - Systemic lupus erythematosus [Recovered/Resolved]
  - Loss of consciousness [Unknown]
  - Antinuclear antibody increased [Unknown]
  - Red blood cell sedimentation rate increased [Unknown]
